FAERS Safety Report 6484665-9 (Version None)
Quarter: 2009Q4

REPORT INFORMATION
  Report Type: 
  Country: None (occurrence: None)
  Receive Date: 20091204
  Receipt Date: 20091124
  Transmission Date: 20100525
  Serious: Yes (Other)
  Sender: FDA-Public Use
  Company Number: 443536

PATIENT
  Age: 42 Year
  Sex: Female

DRUGS (5)
  1. CIPROFLOXACIN [Suspect]
     Indication: INFECTION
     Dosage: 500 MG, 2 DAY, INTRAVENOUS
     Route: 042
     Dates: start: 20070124
  2. CIPROFLOXACIN [Suspect]
     Indication: KNEE ARTHROPLASTY
     Dosage: 500 MG, 2 DAY, INTRAVENOUS
     Route: 042
     Dates: start: 20070124
  3. CIPROFLOXACIN [Suspect]
     Indication: INFECTION
     Dosage: 500 MG, 2 DAY, INTRAVENOUS
     Route: 042
     Dates: start: 20070124
  4. CIPROFLOXACIN [Suspect]
     Indication: KNEE ARTHROPLASTY
     Dosage: 500 MG, 2 DAY, INTRAVENOUS
     Route: 042
     Dates: start: 20070124
  5. FLOXACILLIN SODIUM [Suspect]
     Indication: INFECTION
     Dates: start: 20070124

REACTIONS (4)
  - HAEMOGLOBIN DECREASED [None]
  - NEUTROPHIL COUNT DECREASED [None]
  - RED BLOOD CELL COUNT DECREASED [None]
  - WHITE BLOOD CELL COUNT DECREASED [None]
